FAERS Safety Report 5409399-0 (Version None)
Quarter: 2007Q3

REPORT INFORMATION
  Report Type: 
  Country: None (occurrence: None)
  Receive Date: 20070807
  Receipt Date: 20070730
  Transmission Date: 20080115
  Serious: Yes (Hospitalization)
  Sender: FDA-Public Use
  Company Number: GXKR2007GB03785

PATIENT
  Age: 9 Year
  Sex: Female
  Weight: 26.8 kg

DRUGS (1)
  1. OMNITROPE [Suspect]
     Indication: TURNER'S SYNDROME
     Dosage: 1.8 MG, INJECTION NOS
     Dates: start: 20031011, end: 20070401

REACTIONS (1)
  - THROMBOCYTOPENIC PURPURA [None]
